FAERS Safety Report 4400487-4 (Version None)
Quarter: 2004Q3

REPORT INFORMATION
  Report Type: 
  Country: None (occurrence: None)
  Receive Date: 20040714
  Receipt Date: 20040629
  Transmission Date: 20050211
  Serious: Yes (Hospitalization, Other)
  Sender: FDA-Public Use
  Company Number: USA040567276

PATIENT
  Age: 66 Year
  Sex: Female
  Weight: 36 kg

DRUGS (4)
  1. EVISTA [Suspect]
     Indication: OSTEOPOROSIS
     Dates: start: 20031001
  2. SYNTHROID [Concomitant]
  3. QUININE [Concomitant]
  4. AMITRIPTYLINE HCL [Concomitant]

REACTIONS (13)
  - ABDOMINAL DISTENSION [None]
  - ANGINA PECTORIS [None]
  - COLON CANCER [None]
  - DYSPHASIA [None]
  - ERYTHEMA [None]
  - GASTRIC CANCER [None]
  - MALIGNANT OMENTUM NEOPLASM [None]
  - OESOPHAGEAL CARCINOMA [None]
  - SIGNET-RING CELL CARCINOMA [None]
  - SMALL INTESTINE CARCINOMA [None]
  - THROAT CANCER [None]
  - VOMITING [None]
  - WEIGHT DECREASED [None]
